FAERS Safety Report 6956159-5 (Version None)
Quarter: 2010Q3

REPORT INFORMATION
  Report Type: 
  Country: None (occurrence: None)
  Receive Date: 20100830
  Receipt Date: 20100816
  Transmission Date: 20110219
  Serious: Yes (Hospitalization)
  Sender: FDA-Public Use
  Company Number: PHHY2010NZ50456

PATIENT
  Sex: Female

DRUGS (8)
  1. CLOZARIL [Suspect]
     Indication: SCHIZOPHRENIA
     Dosage: 50 MG MORING 100 MG NOCTE
     Route: 048
     Dates: start: 20020304, end: 20100710
  2. ACETAMINOPHEN [Concomitant]
  3. LORAZEPAM [Concomitant]
  4. ASPIRIN [Concomitant]
  5. AMITRIPTYLINE HCL [Concomitant]
  6. CILAZAPRIL [Concomitant]
     Dosage: 01 MG OD
  7. FUROSEMIDE [Concomitant]
     Dosage: 40 MG OD
  8. METFORMIN HCL [Concomitant]

REACTIONS (11)
  - ARTERIAL STENOSIS [None]
  - BLOOD PRESSURE SYSTOLIC INCREASED [None]
  - BRAIN HYPOXIA [None]
  - CARDIAC FAILURE [None]
  - CARDIOMYOPATHY [None]
  - CEREBRAL INFARCTION [None]
  - CIRCULATORY COLLAPSE [None]
  - EJECTION FRACTION DECREASED [None]
  - HYPOXIC-ISCHAEMIC ENCEPHALOPATHY [None]
  - PULSE ABSENT [None]
  - VENTRICULAR HYPOKINESIA [None]
